FAERS Safety Report 24718726 (Version 1)
Quarter: 2024Q4

REPORT INFORMATION
  Report Type: Spontaneous
  Country: US (occurrence: US)
  Receive Date: 20241210
  Receipt Date: 20241210
  Transmission Date: 20250114
  Serious: Yes (Hospitalization, Other)
  Sender: ABBVIE
  Company Number: US-ABBVIE-6037501

PATIENT
  Age: 66 Year
  Sex: Male
  Weight: 75 kg

DRUGS (3)
  1. PRED FORTE [Suspect]
     Active Substance: PREDNISOLONE ACETATE
     Indication: Corneal transplant
     Dosage: STRENGTH: 10.5MG/ML
     Route: 047
  2. PRED FORTE [Suspect]
     Active Substance: PREDNISOLONE ACETATE
     Route: 047
  3. ATORVASTATIN [Concomitant]
     Active Substance: ATORVASTATIN
     Indication: Blood cholesterol increased

REACTIONS (4)
  - Cerebrovascular accident [Recovered/Resolved]
  - Depression [Not Recovered/Not Resolved]
  - Atrial fibrillation [Unknown]
  - Eye pain [Recovered/Resolved]

NARRATIVE: CASE EVENT DATE: 20140101
